FAERS Safety Report 5175869-6 (Version None)
Quarter: 2006Q4

REPORT INFORMATION
  Report Type: 
  Country: None (occurrence: None)
  Receive Date: 20061215
  Receipt Date: 20060919
  Transmission Date: 20070319
  Serious: Yes (Other)
  Sender: FDA-Public Use
  Company Number: PHEH2006US11910

PATIENT
  Age: 49 Year
  Sex: Female

DRUGS (1)
  1. VIVELLE-DOT [Suspect]
     Indication: HORMONE REPLACEMENT THERAPY
     Dosage: 0.05 MG/DAY, TWICE WEEKLY
     Route: 062
     Dates: start: 20050101

REACTIONS (5)
  - CATARACT [None]
  - EYE DISORDER [None]
  - EYE OPERATION [None]
  - RETINAL DETACHMENT [None]
  - VISUAL DISTURBANCE [None]
